FAERS Safety Report 5158765-X (Version None)
Quarter: 2006Q4

REPORT INFORMATION
  Report Type: 
  Country: None (occurrence: None)
  Receive Date: 20061117
  Receipt Date: 20061019
  Transmission Date: 20070319
  Serious: Yes (Hospitalization)
  Sender: FDA-Public Use
  Company Number: 232014

PATIENT
  Age: 68 Year
  Sex: Female

DRUGS (5)
  1. AVASTIN [Suspect]
     Indication: COLORECTAL CANCER
     Dosage: 475 MG, Q3W, INTRAVENOUS
     Route: 042
     Dates: start: 20060412
  2. CAPECITABIN (CAPECITABINE) [Suspect]
     Indication: COLORECTAL CANCER
     Dosage: 1650 MG, BID, ORAL
     Route: 048
     Dates: start: 20060412
  3. OXALIPLATIN [Suspect]
     Indication: COLORECTAL CANCER
     Dosage: 200 MG, Q3W, INTRAVENOUS
     Route: 042
     Dates: start: 20060412
  4. CAPECITABINE (CAPECITABINE) [Suspect]
     Indication: COLORECTAL CANCER
     Dosage: 1650 MG, BID, ORAL
     Route: 048
     Dates: start: 20060412
  5. OXALIPLATIN [Suspect]
     Indication: COLORECTAL CANCER
     Dosage: 200 MG, Q3W, INTRAVENOUS
     Route: 042
     Dates: start: 20060412

REACTIONS (2)
  - EPILEPSY [None]
  - HEMIPARESIS [None]
